FAERS Safety Report 7397280-X (Version None)
Quarter: 2011Q1

REPORT INFORMATION
  Report Type: 
  Country: None (occurrence: None)
  Receive Date: 20110328
  Receipt Date: 20110316
  Transmission Date: 20110831
  Serious: Yes (Other)
  Sender: FDA-Public Use
  Company Number: US-1185429

PATIENT
  Sex: Male

DRUGS (1)
  1. TRAVATAN [Suspect]
     Dosage: (OPHTHALMIC)
     Route: 047

REACTIONS (1)
  - HALLUCINATION [None]
